FAERS Safety Report 10201567 (Version 1)
Quarter: 2014Q2

REPORT INFORMATION
  Report Type: Spontaneous
  Country: US (occurrence: US)
  Receive Date: 20140528
  Receipt Date: 20140528
  Transmission Date: 20141212
  Serious: No
  Sender: FDA-Public Use
  Company Number: US-BAYER-2014-079172

PATIENT
  Age: 47 Year
  Sex: Female
  Weight: 100 kg

DRUGS (1)
  1. ALEVE TABLET [Suspect]
     Indication: ARTHRALGIA
     Dosage: 4 DF, UNK
     Route: 048

REACTIONS (1)
  - Extra dose administered [None]
